FAERS Safety Report 5164368-3 (Version None)
Quarter: 2006Q4

REPORT INFORMATION
  Report Type: 
  Country: None (occurrence: None)
  Receive Date: 20061127
  Receipt Date: 20061127
  Transmission Date: 20070319
  Serious: Yes (Other)
  Sender: FDA-Public Use
  Company Number: None

PATIENT
  Age: 10 Year
  Sex: Female
  Weight: 34.0198 kg

DRUGS (1)
  1. PENICILLIN VK [Suspect]
     Indication: PHARYNGITIS STREPTOCOCCAL
     Dosage: 1 TEASPOON  TID   PO
     Route: 048
     Dates: start: 20061115, end: 20061121

REACTIONS (4)
  - PAIN [None]
  - PHARMACEUTICAL PRODUCT COMPLAINT [None]
  - POOR QUALITY DRUG ADMINISTERED [None]
  - THERAPY NON-RESPONDER [None]
